FAERS Safety Report 15313033 (Version 1)
Quarter: 2018Q3

REPORT INFORMATION
  Report Type: Spontaneous
  Country: DE (occurrence: DE)
  Receive Date: 20180823
  Receipt Date: 20180823
  Transmission Date: 20181010
  Serious: Yes (Death)
  Sender: FDA-Public Use
  Company Number: PHHY2018DE018719

PATIENT
  Age: 75 Year
  Sex: Female

DRUGS (1)
  1. EVEROLIMUS. [Suspect]
     Active Substance: EVEROLIMUS
     Indication: RENAL CELL CARCINOMA
     Route: 065
     Dates: start: 201601, end: 201601

REACTIONS (5)
  - Drug intolerance [Unknown]
  - Rash pustular [Unknown]
  - General physical health deterioration [Unknown]
  - Death [Fatal]
  - Swelling [Unknown]

NARRATIVE: CASE EVENT DATE: 201601
